FAERS Safety Report 16336876 (Version 1)
Quarter: 2020Q3

REPORT INFORMATION
  Report Type: Spontaneous
  Country: CN (occurrence: CN)
  Receive Date: 20190521
  Receipt Date: 20190521
  Transmission Date: 20201105
  Serious: Yes (Other)
  Sender: FDA-Public Use
  Company Number: CN-ROCHE-2317562

PATIENT
  Age: 46 Year
  Sex: Male

DRUGS (13)
  1. IRINOTECAN [Suspect]
     Active Substance: IRINOTECAN
     Dosage: FOR 2 CYCLES
     Route: 041
     Dates: start: 20171019
  2. CALCIUM FOLINATE [Suspect]
     Active Substance: LEUCOVORIN CALCIUM
     Route: 041
     Dates: start: 20131219
  3. SINTILIMAB. [Suspect]
     Active Substance: SINTILIMAB
     Indication: COLORECTAL ADENOCARCINOMA
     Route: 042
     Dates: start: 20171211
  4. CALCIUM FOLINATE [Suspect]
     Active Substance: LEUCOVORIN CALCIUM
     Route: 041
     Dates: start: 20171019
  5. IRINOTECAN [Suspect]
     Active Substance: IRINOTECAN
     Route: 041
     Dates: start: 20131219
  6. AVASTIN [Suspect]
     Active Substance: BEVACIZUMAB
     Indication: COLORECTAL ADENOCARCINOMA
     Route: 065
     Dates: start: 20130802
  7. IRINOTECAN [Suspect]
     Active Substance: IRINOTECAN
     Dosage: THE DOSE OF IRINOTECAN WAS REDUCED 25%
     Route: 065
     Dates: start: 20140101
  8. 5?FLUOROURACIL [FLUOROURACIL] [Suspect]
     Active Substance: FLUOROURACIL
     Dosage: 680 MG BY INTRAVENOUS INJECTION ON DAY 1 AND 4.0 G BY CONTINUES INJECTION FOR 46 HOURS
     Route: 042
     Dates: start: 20131219
  9. AVASTIN [Suspect]
     Active Substance: BEVACIZUMAB
     Dosage: FOR 2 CYCLES
     Route: 065
     Dates: start: 20171019
  10. CALCIUM FOLINATE [Suspect]
     Active Substance: LEUCOVORIN CALCIUM
     Indication: COLORECTAL ADENOCARCINOMA
     Route: 042
     Dates: start: 20130802
  11. IRINOTECAN [Suspect]
     Active Substance: IRINOTECAN
     Indication: COLORECTAL ADENOCARCINOMA
     Route: 042
     Dates: start: 20130802
  12. 5?FLUOROURACIL [FLUOROURACIL] [Suspect]
     Active Substance: FLUOROURACIL
     Indication: COLORECTAL ADENOCARCINOMA
     Dosage: 688 MG BY INTRAVENOUS INJECTION ON DAY 1 AND 4.12 G BY CONTINUES INJECTION FOR 46 HOURS
     Route: 042
     Dates: start: 20130802
  13. 5?FLUOROURACIL [FLUOROURACIL] [Suspect]
     Active Substance: FLUOROURACIL
     Dosage: 700 MG BY INTRAVENOU INJECTION ON DAY 1 AND 4.25 G BY CONTINUES INJECTION FOR 46 HOURS; FOR 2 CYCLES
     Route: 042
     Dates: start: 20171019

REACTIONS (8)
  - Proctitis [Unknown]
  - Intestinal fibrosis [Unknown]
  - Nausea [Unknown]
  - Vomiting [Unknown]
  - Alanine aminotransferase increased [Unknown]
  - Aspartate aminotransferase increased [Unknown]
  - Fatigue [Unknown]
  - Blood bilirubin increased [Unknown]

NARRATIVE: CASE EVENT DATE: 2017
